FAERS Safety Report 12918107 (Version 1)
Quarter: 2016Q4

REPORT INFORMATION
  Report Type: Spontaneous
  Country: US (occurrence: US)
  Receive Date: 20161107
  Receipt Date: 20161107
  Transmission Date: 20170207
  Serious: No
  Sender: FDA-Public Use
  Company Number: US-ASTRAZENECA-2016SF16086

PATIENT
  Age: 735 Month
  Sex: Male
  Weight: 72.6 kg

DRUGS (10)
  1. CRESTOR [Suspect]
     Active Substance: ROSUVASTATIN CALCIUM
     Dosage: UNKNOWN
     Route: 048
  2. CLONIDINE. [Concomitant]
     Active Substance: CLONIDINE
     Dosage: UNKNOWN
     Route: 048
  3. BABY ASPIRIN [Concomitant]
     Active Substance: ASPIRIN
     Dosage: UNKNOWN
     Route: 048
  4. LEVOTHYROXINE. [Concomitant]
     Active Substance: LEVOTHYROXINE
     Dosage: UNKNOWN
     Route: 048
  5. LIPOFEN [Concomitant]
     Active Substance: FENOFIBRATE
     Dosage: UNKNOWN
     Route: 048
  6. KETAMINE TROCHES [Concomitant]
     Dosage: UNKNOWN
     Route: 065
  7. PHENTORA [Concomitant]
     Indication: PAIN
     Route: 065
  8. SUBSYS [Concomitant]
     Active Substance: FENTANYL
     Indication: PAIN
     Dosage: UNKNOWN
     Route: 065
  9. ENALAPRIL [Concomitant]
     Active Substance: ENALAPRIL
     Dosage: UNKNOWN
     Route: 048
  10. MOVANTIK [Suspect]
     Active Substance: NALOXEGOL OXALATE
     Indication: CONSTIPATION
     Route: 048
     Dates: start: 20160603, end: 201610

REACTIONS (4)
  - Gastrointestinal pain [Unknown]
  - Pain [Not Recovered/Not Resolved]
  - Diverticulitis [Unknown]
  - Neuralgia [Not Recovered/Not Resolved]

NARRATIVE: CASE EVENT DATE: 201606
